FAERS Safety Report 14691482 (Version 1)
Quarter: 2018Q1

REPORT INFORMATION
  Report Type: Spontaneous
  Country: CA (occurrence: CA)
  Receive Date: 20180328
  Receipt Date: 20180328
  Transmission Date: 20180509
  Serious: Yes (Other)
  Sender: FDA-Public Use
  Company Number: CA-ASTRAZENECA-2018SE36671

PATIENT
  Age: 54 Year
  Sex: Female

DRUGS (5)
  1. ARIMIDEX [Suspect]
     Active Substance: ANASTROZOLE
     Indication: NEOPLASM MALIGNANT
     Route: 048
     Dates: start: 201705, end: 201802
  2. TYKERB [Concomitant]
     Active Substance: LAPATINIB DITOSYLATE
     Indication: METASTASIS
     Dates: start: 2013, end: 2016
  3. XELODA [Concomitant]
     Active Substance: CAPECITABINE
     Indication: METASTASIS
  4. ARIMIDEX [Suspect]
     Active Substance: ANASTROZOLE
     Indication: BLOOD OESTROGEN INCREASED
     Route: 048
     Dates: start: 201705, end: 201802
  5. HERCEPTIN [Concomitant]
     Active Substance: TRASTUZUMAB
     Indication: BREAST CANCER METASTATIC

REACTIONS (2)
  - Malignant neoplasm progression [Unknown]
  - Metastases to liver [Unknown]
